FAERS Safety Report 9210884 (Version 3)
Quarter: 2013Q2

REPORT INFORMATION
  Report Type: Report from Study
  Country: BR (occurrence: BR)
  Receive Date: 20130404
  Receipt Date: 20130529
  Transmission Date: 20140414
  Serious: Yes (Other)
  Sender: FDA-Public Use
  Company Number: BR-US-EMD SERONO, INC.-7202520

PATIENT
  Age: 54 Year
  Sex: Female

DRUGS (9)
  1. REBIF [Suspect]
     Indication: RELAPSING-REMITTING MULTIPLE SCLEROSIS
     Dates: start: 20110919, end: 20130227
  2. REBIF [Suspect]
     Dates: start: 20130316
  3. ATACAND                            /01349502/ [Concomitant]
     Indication: HYPERTENSION
  4. SELOZOK [Concomitant]
     Indication: HYPERTENSION
  5. CYMBALTA [Concomitant]
     Indication: PANIC DISORDER
  6. CYMBALTA [Concomitant]
     Indication: RESTLESS LEGS SYNDROME
  7. VYTORIN [Concomitant]
     Indication: PRODUCT USED FOR UNKNOWN INDICATION
  8. AAS [Concomitant]
     Indication: PRODUCT USED FOR UNKNOWN INDICATION
  9. RIVOTRIL [Concomitant]
     Indication: PRODUCT USED FOR UNKNOWN INDICATION

REACTIONS (3)
  - Type 2 diabetes mellitus [Not Recovered/Not Resolved]
  - Mobility decreased [Not Recovered/Not Resolved]
  - Arthralgia [Not Recovered/Not Resolved]
